FAERS Safety Report 21521374 (Version 1)
Quarter: 2022Q4

REPORT INFORMATION
  Report Type: Other
  Country: PT (occurrence: None)
  Receive Date: 20221028
  Receipt Date: 20221028
  Transmission Date: 20230113
  Serious: Yes (Death)
  Sender: FDA-Public Use
  Company Number: PT-ROCHE-3206618

PATIENT
  Age: 53 Year
  Sex: Male

DRUGS (5)
  1. ATEZOLIZUMAB [Suspect]
     Active Substance: ATEZOLIZUMAB
     Indication: Small cell lung cancer
     Dosage: 3RD CYCLE OF CHEMOTHERAPY
     Route: 065
  2. ETOPOSIDE [Concomitant]
     Active Substance: ETOPOSIDE
     Indication: Small cell lung cancer
  3. CARBOPLATIN [Concomitant]
     Active Substance: CARBOPLATIN
     Indication: Small cell lung cancer
  4. AMIFAMPRIDINE [Concomitant]
     Active Substance: AMIFAMPRIDINE
  5. PYRIDOSTIGMINE [Concomitant]
     Active Substance: PYRIDOSTIGMINE

REACTIONS (5)
  - Disease progression [Fatal]
  - Myasthenic syndrome [Fatal]
  - Metastases to pancreas [Fatal]
  - Intestinal metastasis [Fatal]
  - Metastases to central nervous system [Fatal]
